FAERS Safety Report 13035237 (Version 3)
Quarter: 2017Q1

REPORT INFORMATION
  Report Type: Report from Study
  Country: IT (occurrence: IT)
  Receive Date: 20161216
  Receipt Date: 20170106
  Transmission Date: 20170428
  Serious: Yes (Hospitalization, Other)
  Sender: FDA-Public Use
  Company Number: IT-TEVA-719446ACC

PATIENT
  Age: 53 Year
  Sex: Male

DRUGS (2)
  1. COPAXONE [Suspect]
     Active Substance: GLATIRAMER ACETATE
     Indication: MULTIPLE SCLEROSIS
     Dosage: 40 MG/ML
     Dates: start: 20151119, end: 201611
  2. HALCION [Concomitant]
     Active Substance: TRIAZOLAM
     Indication: INSOMNIA
     Dosage: 250 MILLIGRAM DAILY;
     Route: 048

REACTIONS (3)
  - Basal cell carcinoma [Unknown]
  - Ear haemorrhage [Unknown]
  - Therapy change [Unknown]

NARRATIVE: CASE EVENT DATE: 20160928
